FAERS Safety Report 9806597 (Version 1)
Quarter: 2014Q1

REPORT INFORMATION
  Report Type: Report from Study
  Country: FR (occurrence: FR)
  Receive Date: 20140109
  Receipt Date: 20140109
  Transmission Date: 20141002
  Serious: Yes (Other)
  Sender: FDA-Public Use
  Company Number: FR-B.I. PHARMACEUTICALS,INC./RIDGEFIELD-2014-BI-00834BI

PATIENT
  Age: 38 Year
  Sex: Female

DRUGS (3)
  1. VIRAMUNE [Suspect]
     Indication: ANTIVIRAL TREATMENT
     Route: 048
  2. SUSTIVA ,EFV [Concomitant]
     Route: 048
  3. COMBIVIR, ZDV +3TC [Concomitant]
     Route: 048

REACTIONS (1)
  - Stillbirth [Unknown]
